FAERS Safety Report 7934204-8 (Version None)
Quarter: 2011Q4

REPORT INFORMATION
  Report Type: 
  Country: None (occurrence: None)
  Receive Date: 20111122
  Receipt Date: 20111115
  Transmission Date: 20120403
  Serious: Yes (Other)
  Sender: FDA-Public Use
  Company Number: US-PFIZER INC-2011280717

PATIENT

DRUGS (1)
  1. CARBOPLATIN [Suspect]
     Indication: ACUTE LEUKAEMIA
     Dosage: 270 MG/M2 DAY

REACTIONS (2)
  - TOXICITY TO VARIOUS AGENTS [None]
  - CYSTITIS HAEMORRHAGIC [None]
